FAERS Safety Report 24151842 (Version 1)
Quarter: 2024Q3

REPORT INFORMATION
  Report Type: Spontaneous
  Country: US (occurrence: US)
  Receive Date: 20240730
  Receipt Date: 20240730
  Transmission Date: 20241017
  Serious: No
  Sender: DR REDDYS
  Company Number: US-DRL-USA-LIT/USA/24/0010993

PATIENT
  Sex: Male

DRUGS (4)
  1. CLONIDINE [Suspect]
     Active Substance: CLONIDINE
     Indication: Insomnia
  2. GUANFACINE [Concomitant]
     Active Substance: GUANFACINE
     Indication: Insomnia
  3. MELATONIN [Concomitant]
     Active Substance: MELATONIN
     Indication: Insomnia
  4. MIRTAZAPINE [Concomitant]
     Active Substance: MIRTAZAPINE
     Indication: Insomnia

REACTIONS (1)
  - Drug ineffective for unapproved indication [Unknown]
